FAERS Safety Report 12291157 (Version 4)
Quarter: 2016Q2

REPORT INFORMATION
  Report Type: Spontaneous
  Country: DE (occurrence: DE)
  Receive Date: 20160421
  Receipt Date: 20160517
  Transmission Date: 20160815
  Serious: Yes (Other)
  Sender: FDA-Public Use
  Company Number: DE-JNJFOC-20160419480

PATIENT
  Age: 66 Year
  Sex: Male
  Weight: 85 kg

DRUGS (4)
  1. REMICADE [Suspect]
     Active Substance: INFLIXIMAB
     Indication: PSORIATIC ARTHROPATHY
     Dosage: ONCE EVERY 6-7 WEEKS
     Route: 042
     Dates: start: 201006
  2. SULFASALAZINE DELAYED-RELEASE [Concomitant]
     Active Substance: SULFASALAZINE
     Indication: ANKYLOSING SPONDYLITIS
     Route: 048
     Dates: start: 200711
  3. REMICADE [Suspect]
     Active Substance: INFLIXIMAB
     Indication: ANKYLOSING SPONDYLITIS
     Dosage: ONCE EVERY 6-7 WEEKS
     Route: 042
     Dates: start: 201006
  4. REMICADE [Suspect]
     Active Substance: INFLIXIMAB
     Indication: ANKYLOSING SPONDYLITIS
     Dosage: ONCE EVERY 6-7 WEEKS
     Route: 042
     Dates: start: 201006

REACTIONS (3)
  - Off label use [Unknown]
  - Lip squamous cell carcinoma [Recovered/Resolved]
  - Product use issue [Unknown]

NARRATIVE: CASE EVENT DATE: 201006
